FAERS Safety Report 9413609 (Version 3)
Quarter: 2013Q4

REPORT INFORMATION
  Report Type: Spontaneous
  Country: US (occurrence: US)
  Receive Date: 20130722
  Receipt Date: 20131126
  Transmission Date: 20140711
  Serious: Yes (Other)
  Sender: FDA-Public Use
  Company Number: US-PFIZER INC-2013213535

PATIENT
  Age: 53 Year
  Sex: Female

DRUGS (9)
  1. XELJANZ [Suspect]
     Indication: RHEUMATOID ARTHRITIS
     Dosage: 5 MG, 2X/DAY
     Route: 048
     Dates: start: 20130708
  2. MELOXICAM [Concomitant]
     Dosage: UNK
  3. GLYBURIDE [Concomitant]
     Dosage: UNK
  4. JANUMET [Concomitant]
     Dosage: UNK
  5. SINGULAIR [Concomitant]
     Dosage: UNK
  6. ADVAIR [Concomitant]
     Dosage: UNK
  7. MOBIC [Concomitant]
     Dosage: 7.5 UNK, 2X/DAY
  8. ULTRACET [Concomitant]
     Dosage: UNK
  9. PRILOSEC [Concomitant]
     Dosage: UNK

REACTIONS (4)
  - Urinary tract infection [Unknown]
  - Vomiting [Recovered/Resolved]
  - Abdominal pain [Recovered/Resolved]
  - Diarrhoea [Recovered/Resolved]
